FAERS Safety Report 24312608 (Version 1)
Quarter: 2024Q3

REPORT INFORMATION
  Report Type: Spontaneous
  Country: US (occurrence: US)
  Receive Date: 20240912
  Receipt Date: 20240912
  Transmission Date: 20241017
  Serious: No
  Sender: CELLTRION
  Company Number: US-CELLTRION INC.-2024US019064

PATIENT

DRUGS (1)
  1. ZYMFENTRA [Suspect]
     Active Substance: INFLIXIMAB-DYYB
     Indication: Product used for unknown indication
     Dosage: 120 MG/ML SOLUTION IN A SINGLE-DOSE PRE-FILLED PEN, INJECT SUBCUTANEOUSLY EVERY 2 WEEKS
     Route: 058

REACTIONS (1)
  - Product dose omission issue [Not Recovered/Not Resolved]

NARRATIVE: CASE EVENT DATE: 20240806
